FAERS Safety Report 8911936 (Version 1)
Quarter: 2012Q4

REPORT INFORMATION
  Report Type: 
  Country: AT (occurrence: AT)
  Receive Date: 20121115
  Receipt Date: 20121115
  Transmission Date: 20130627
  Serious: Yes (Death)
  Sender: FDA-Public Use
  Company Number: AT-BRISTOL-MYERS SQUIBB COMPANY-17103979

PATIENT
  Age: 73 Year
  Sex: Male

DRUGS (11)
  1. ERBITUX [Suspect]
     Indication: HYPOPHARYNGEAL CANCER
     Dosage: 250mg/m2(29Mar12)
     Dates: start: 20120322
  2. AMOXICILLIN + CLAVULANATE [Concomitant]
     Indication: INFECTION
     Dosage: Clavamox
     Route: 048
     Dates: start: 20120322, end: 20120403
  3. CIPRALEX [Concomitant]
     Indication: DEPRESSION
     Route: 048
     Dates: start: 20110215, end: 20120403
  4. NEXIUM [Concomitant]
     Route: 048
     Dates: start: 20110315, end: 20120403
  5. PULMICORT [Concomitant]
     Indication: CHRONIC OBSTRUCTIVE PULMONARY DISEASE
     Dosage: 2x2
     Dates: start: 20110915, end: 20120403
  6. SEREVENT [Concomitant]
     Indication: CHRONIC OBSTRUCTIVE PULMONARY DISEASE
     Dosage: 2x2
     Route: 055
     Dates: start: 20110915, end: 20120403
  7. SPIRIVA [Concomitant]
     Indication: CHRONIC OBSTRUCTIVE PULMONARY DISEASE
     Route: 048
     Dates: start: 20110915, end: 20120403
  8. SULTANOL [Concomitant]
     Indication: CHRONIC OBSTRUCTIVE PULMONARY DISEASE
     Dates: start: 20110915, end: 20120403
  9. LOVENOX [Concomitant]
     Indication: ANTICOAGULANT THERAPY
     Dosage: Inj
     Route: 058
     Dates: start: 20110315, end: 20120403
  10. CISPLATIN [Concomitant]
     Indication: PALLIATIVE CARE
     Dates: start: 20120322
  11. TAXOTERE [Concomitant]
     Indication: PALLIATIVE CARE
     Dates: start: 20120322

REACTIONS (2)
  - Pneumonia [Fatal]
  - Septic shock [Fatal]
